FAERS Safety Report 9658066 (Version 2)
Quarter: 2013Q4

REPORT INFORMATION
  Report Type: Spontaneous
  Country: US (occurrence: US)
  Receive Date: 20131030
  Receipt Date: 20131231
  Transmission Date: 20140711
  Serious: Yes (Other)
  Sender: FDA-Public Use
  Company Number: US-BRISTOL-MYERS SQUIBB COMPANY-19697085

PATIENT
  Age: 55 Year
  Sex: Female
  Weight: 226.76 kg

DRUGS (3)
  1. ABILIFY [Suspect]
     Route: 048
     Dates: start: 201309, end: 20131010
  2. ABILIFY MAINTENA INJECTION [Suspect]
     Indication: SCHIZOAFFECTIVE DISORDER
     Route: 030
     Dates: start: 20130923
  3. REMERON [Concomitant]
     Indication: DEPRESSION

REACTIONS (2)
  - Confusional state [Unknown]
  - Memory impairment [Unknown]
